FAERS Safety Report 6519422-8 (Version None)
Quarter: 2009Q4

REPORT INFORMATION
  Report Type: 
  Country: None (occurrence: None)
  Receive Date: 20091228
  Receipt Date: 20091215
  Transmission Date: 20100525
  Serious: Yes (Other)
  Sender: FDA-Public Use
  Company Number: US-MERCK-0912USA02648

PATIENT
  Age: 2 Year
  Sex: Male

DRUGS (1)
  1. DECADRON [Suspect]
     Indication: LYMPHOHISTIOCYTOSIS
     Route: 048

REACTIONS (1)
  - ZYGOMYCOSIS [None]
